FAERS Safety Report 14266439 (Version 1)
Quarter: 2017Q4

REPORT INFORMATION
  Report Type: Spontaneous
  Country: US (occurrence: US)
  Receive Date: 20171208
  Receipt Date: 20171208
  Transmission Date: 20180321
  Serious: Yes (Life-Threatening, Hospitalization)
  Sender: FDA-Public Use
  Company Number: None

PATIENT
  Age: 49 Year
  Sex: Female
  Weight: 55 kg

DRUGS (5)
  1. VALACYCLOVIR [Concomitant]
     Active Substance: VALACYCLOVIR HYDROCHLORIDE
  2. IBRUTINIB [Suspect]
     Active Substance: IBRUTINIB
     Indication: CHRONIC GRAFT VERSUS HOST DISEASE
     Route: 048
     Dates: start: 20170901, end: 20171114
  3. RUXO LITINIB [Concomitant]
  4. TIZANIDINE. [Concomitant]
     Active Substance: TIZANIDINE
  5. SIROLIMUS. [Concomitant]
     Active Substance: SIROLIMUS

REACTIONS (2)
  - Pneumonia fungal [None]
  - Haematemesis [None]

NARRATIVE: CASE EVENT DATE: 20171114
